FAERS Safety Report 8809770 (Version 1)
Quarter: 2012Q4

REPORT INFORMATION
  Report Type: 
  Country: US (occurrence: US)
  Receive Date: 20120926
  Receipt Date: 20120926
  Transmission Date: 20130627
  Serious: Yes (Hospitalization, Other)
  Sender: FDA-Public Use
  Company Number: CHPA2012US020126

PATIENT
  Age: 73 Year
  Sex: Female

DRUGS (4)
  1. MINERAL OIL\PETROLEUM [Suspect]
     Indication: DRY SKIN
     Dosage: UNK, QD after bath
     Route: 061
     Dates: start: 1958
  2. CYTOMEL [Concomitant]
     Indication: THYROID DISORDER
     Dosage: Unk, Unk
  3. SYNTHROID [Concomitant]
     Indication: THYROID DISORDER
     Dosage: Unk, Unk
  4. ACETYLSALICYLIC ACID [Concomitant]
     Dosage: Unk, Unk

REACTIONS (10)
  - Cystitis [Recovered/Resolved]
  - Gout [Not Recovered/Not Resolved]
  - Skin haemorrhage [Unknown]
  - Pruritus [Not Recovered/Not Resolved]
  - Scratch [Not Recovered/Not Resolved]
  - Seasonal allergy [Recovered/Resolved]
  - Fluid retention [Not Recovered/Not Resolved]
  - Oedema peripheral [Unknown]
  - Drug effect decreased [Not Recovered/Not Resolved]
  - Therapeutic response unexpected [Unknown]
